FAERS Safety Report 8923037 (Version 2)
Quarter: 2012Q4

REPORT INFORMATION
  Report Type: 
  Country: US (occurrence: US)
  Receive Date: 20121123
  Receipt Date: 20121227
  Transmission Date: 20130627
  Serious: Yes (Other)
  Sender: FDA-Public Use
  Company Number: US-JNJFOC-20121108382

PATIENT
  Sex: Male

DRUGS (5)
  1. KETOCONAZOLE [Suspect]
     Indication: PROSTATE CANCER METASTATIC
     Route: 065
  2. DOCETAXEL [Suspect]
     Indication: PROSTATE CANCER METASTATIC
     Route: 042
  3. DOCETAXEL [Suspect]
     Indication: PROSTATE CANCER METASTATIC
     Route: 042
  4. HYDROCORTISONE [Suspect]
     Indication: PROSTATE CANCER METASTATIC
     Dosage: 20 mg in morning and 10 mg in evening
     Route: 065
  5. DEXAMETHASONE [Suspect]
     Indication: PROSTATE CANCER METASTATIC
     Dosage: at 12 hour and 1 hour before docetaxel infusion and 12 hours after the infusion
     Route: 048

REACTIONS (28)
  - Embolism [Unknown]
  - Leukopenia [Unknown]
  - Anaemia [Unknown]
  - Lymphopenia [Unknown]
  - Constipation [Unknown]
  - Diarrhoea [Unknown]
  - Infection [Unknown]
  - Hepatic enzyme increased [Unknown]
  - Blood bilirubin increased [Unknown]
  - Blood alkaline phosphatase increased [Unknown]
  - Hyperglycaemia [Unknown]
  - Fatigue [Unknown]
  - Peripheral sensory neuropathy [Unknown]
  - Abdominal pain [Unknown]
  - Thrombocytopenia [Unknown]
  - Oedema [Unknown]
  - Nail disorder [Unknown]
  - Decreased appetite [Unknown]
  - Dysgeusia [Unknown]
  - Nausea [Unknown]
  - Vomiting [Unknown]
  - Muscular weakness [Unknown]
  - Dyspnoea [Unknown]
  - Hypoalbuminaemia [Unknown]
  - Off label use [Unknown]
  - Insomnia [Unknown]
  - Dyspepsia [Unknown]
  - Lacrimation increased [Unknown]
